FAERS Safety Report 13188615 (Version 1)
Quarter: 2017Q1

REPORT INFORMATION
  Report Type: Spontaneous
  Country: US (occurrence: US)
  Receive Date: 20170204
  Receipt Date: 20170204
  Transmission Date: 20170428
  Serious: Yes (Disabling, Other)
  Sender: FDA-Public Use
  Company Number: None

PATIENT
  Age: 59 Year
  Sex: Female
  Weight: 58.5 kg

DRUGS (4)
  1. CLONAZEPAM. [Suspect]
     Active Substance: CLONAZEPAM
     Indication: ANXIETY
     Dosage: ?          QUANTITY:1 TABLET(S);?
     Route: 048
     Dates: start: 20160822
  2. NAPROXEN. [Concomitant]
     Active Substance: NAPROXEN
  3. ALEVE [Concomitant]
     Active Substance: NAPROXEN SODIUM
  4. GABAPENTIN. [Concomitant]
     Active Substance: GABAPENTIN

REACTIONS (41)
  - Withdrawal syndrome [None]
  - Dysphagia [None]
  - Back pain [None]
  - Dental caries [None]
  - Tremor [None]
  - Dysgeusia [None]
  - Speech disorder [None]
  - Panic attack [None]
  - Confusional state [None]
  - Dizziness [None]
  - Pain in jaw [None]
  - Agitation [None]
  - Parosmia [None]
  - Impaired driving ability [None]
  - Lip swelling [None]
  - Cognitive disorder [None]
  - Constipation [None]
  - Photophobia [None]
  - Hyperacusis [None]
  - Unevaluable event [None]
  - Nightmare [None]
  - Abdominal pain upper [None]
  - Vision blurred [None]
  - Glossodynia [None]
  - Memory impairment [None]
  - Feeling of body temperature change [None]
  - Tongue discomfort [None]
  - Toothache [None]
  - Dyskinesia [None]
  - Choking [None]
  - Muscular weakness [None]
  - Salivary hypersecretion [None]
  - Disturbance in attention [None]
  - Muscle twitching [None]
  - Flushing [None]
  - Vitreous floaters [None]
  - Pain in extremity [None]
  - Nervousness [None]
  - Sleep disorder [None]
  - Product substitution issue [None]
  - Drug ineffective [None]

NARRATIVE: CASE EVENT DATE: 20160822
